FAERS Safety Report 11112086 (Version 3)
Quarter: 2015Q3

REPORT INFORMATION
  Report Type: Spontaneous
  Country: DE (occurrence: DE)
  Receive Date: 20150514
  Receipt Date: 20150712
  Transmission Date: 20151125
  Serious: Yes (Hospitalization)
  Sender: FDA-Public Use
  Company Number: DE-JNJFOC-20150507924

PATIENT
  Age: 59 Year
  Sex: Female

DRUGS (14)
  1. REMICADE [Suspect]
     Active Substance: INFLIXIMAB
     Indication: COLITIS ULCERATIVE
     Route: 042
     Dates: start: 20150226, end: 20150312
  2. ASPIRIN. [Concomitant]
     Active Substance: ASPIRIN
     Route: 065
  3. UNIZINK [Concomitant]
     Active Substance: AVOBENZONE\HOMOSALATE\OCTISALATE
     Route: 065
  4. METFORMIN [Concomitant]
     Active Substance: METFORMIN HYDROCHLORIDE
     Route: 065
  5. CLAVERSAL [Concomitant]
     Active Substance: MESALAMINE
     Route: 065
  6. PANTOPRAZOLE SODIUM. [Concomitant]
     Active Substance: PANTOPRAZOLE SODIUM
     Route: 065
  7. CALCIMAGON D3 [Concomitant]
     Active Substance: CALCIUM\CHOLECALCIFEROL
     Route: 065
  8. HYDROMORPHONE [Concomitant]
     Active Substance: HYDROMORPHONE
     Route: 065
  9. TRIAMTEREN  COMP [Concomitant]
     Dosage: 50 MG/25 MG
     Route: 065
  10. INSULIN [Concomitant]
     Active Substance: INSULIN NOS
     Route: 065
  11. L-THYROXIN [Concomitant]
     Active Substance: LEVOTHYROXINE SODIUM
     Route: 065
  12. REMICADE [Suspect]
     Active Substance: INFLIXIMAB
     Indication: PYODERMA GANGRENOSUM
     Route: 042
     Dates: start: 20150226, end: 20150312
  13. LYRICA [Concomitant]
     Active Substance: PREGABALIN
     Route: 065
  14. METHOHEXAL [Concomitant]
     Route: 065

REACTIONS (3)
  - Off label use [Unknown]
  - Pyoderma gangrenosum [Unknown]
  - Pancreatitis acute [Recovered/Resolved]

NARRATIVE: CASE EVENT DATE: 20150420
